FAERS Safety Report 4801146-6 (Version None)
Quarter: 2005Q4

REPORT INFORMATION
  Report Type: 
  Country: None (occurrence: None)
  Receive Date: 20051011
  Receipt Date: 20051004
  Transmission Date: 20060501
  Serious: Yes (Hospitalization)
  Sender: FDA-Public Use
  Company Number: GRWYE033806OCT05

PATIENT
  Age: 58 Year
  Sex: Female

DRUGS (4)
  1. EFFEXOR XR [Suspect]
     Indication: SCHIZOAFFECTIVE DISORDER
     Dosage: SEE IMAGE, ORAL
     Route: 048
     Dates: start: 20010101, end: 20051001
  2. EFFEXOR XR [Suspect]
     Indication: SCHIZOAFFECTIVE DISORDER
     Dosage: SEE IMAGE, ORAL
     Route: 048
     Dates: start: 20050101
  3. RISPERDAL [Concomitant]
  4. NEURONTIN [Concomitant]

REACTIONS (1)
  - INTERSTITIAL LUNG DISEASE [None]
